FAERS Safety Report 17063358 (Version 1)
Quarter: 2019Q4

REPORT INFORMATION
  Report Type: Spontaneous
  Country: US (occurrence: US)
  Receive Date: 20191122
  Receipt Date: 20191122
  Transmission Date: 20200122
  Serious: Yes (Hospitalization)
  Sender: FDA-Public Use
  Company Number: None

PATIENT
  Age: 31 Year
  Sex: Female

DRUGS (2)
  1. ESCITALOPRAM [Concomitant]
     Active Substance: ESCITALOPRAM OXALATE
  2. MAKENA [Suspect]
     Active Substance: HYDROXYPROGESTERONE CAPROATE
     Indication: POSTPONEMENT OF PRETERM DELIVERY
     Dosage: ?          OTHER FREQUENCY:EVERY 7 DAYS;?
     Route: 058

REACTIONS (2)
  - Maternal exposure during pregnancy [None]
  - Abortion spontaneous [None]
